FAERS Safety Report 17540891 (Version 1)
Quarter: 2020Q1

REPORT INFORMATION
  Report Type: Spontaneous
  Country: US (occurrence: US)
  Receive Date: 20200313
  Receipt Date: 20200313
  Transmission Date: 20200409
  Serious: Yes (Other)
  Sender: FDA-Public Use
  Company Number: US-TARO-2019TAR00302

PATIENT
  Age: 6 Year
  Sex: Female

DRUGS (2)
  1. LAMOTRIGINE (GLENMARK) [Suspect]
     Active Substance: LAMOTRIGINE
     Indication: SEIZURE
     Dosage: 10 MG, 2X/DAY
     Dates: start: 201709
  2. LAMOTRIGINE TABLETS 25 MG [Suspect]
     Active Substance: LAMOTRIGINE
     Indication: SEIZURE
     Dosage: 25 MG, 2X/DAY
     Dates: start: 20190310

REACTIONS (3)
  - Product substitution issue [Not Recovered/Not Resolved]
  - Atonic seizures [Not Recovered/Not Resolved]
  - Tonic convulsion [Not Recovered/Not Resolved]

NARRATIVE: CASE EVENT DATE: 20190310
